FAERS Safety Report 4924922-8 (Version None)
Quarter: 2006Q1

REPORT INFORMATION
  Report Type: 
  Country: None (occurrence: None)
  Receive Date: 20060222
  Receipt Date: 20060206
  Transmission Date: 20060701
  Serious: Yes (Hospitalization)
  Sender: FDA-Public Use
  Company Number: 2006-137660-NL

PATIENT
  Age: 39 Year
  Sex: Female

DRUGS (1)
  1. NUVARING [Suspect]
     Indication: CONTRACEPTION
     Dosage: DF
     Dates: start: 20050701, end: 20051221

REACTIONS (5)
  - ERYTHEMA NODOSUM [None]
  - FLUSHING [None]
  - MYALGIA [None]
  - PAIN IN EXTREMITY [None]
  - THERAPY NON-RESPONDER [None]
